FAERS Safety Report 13005242 (Version 1)
Quarter: 2016Q4

REPORT INFORMATION
  Report Type: Spontaneous
  Country: JP (occurrence: JP)
  Receive Date: 20161207
  Receipt Date: 20161207
  Transmission Date: 20170207
  Serious: Yes (Other)
  Sender: FDA-Public Use
  Company Number: PHHY2016JP165382

PATIENT
  Age: 27 Year
  Sex: Female

DRUGS (3)
  1. VALPROIC ACID. [Suspect]
     Active Substance: VALPROIC ACID
     Indication: EPILEPSY
     Dosage: 1400 MG, QD
     Route: 065
  2. PHENOBARBITAL. [Suspect]
     Active Substance: PHENOBARBITAL
     Indication: EPILEPSY
     Dosage: 140 MG, QD
     Route: 065
  3. CARBAMAZEPINE. [Suspect]
     Active Substance: CARBAMAZEPINE
     Indication: EPILEPSY
     Dosage: 1200 MG, QD
     Route: 065

REACTIONS (2)
  - Seizure [Unknown]
  - Maternal exposure timing unspecified [Unknown]
